FAERS Safety Report 10781302 (Version 11)
Quarter: 2016Q1

REPORT INFORMATION
  Report Type: Spontaneous
  Country: US (occurrence: US)
  Receive Date: 20150210
  Receipt Date: 20160225
  Transmission Date: 20160525
  Serious: Yes (Hospitalization, Other)
  Sender: FDA-Public Use
  Company Number: US-GLAXOSMITHKLINE-A1074394A

PATIENT
  Age: 40 Year
  Sex: Male

DRUGS (7)
  1. FLOLAN [Suspect]
     Active Substance: EPOPROSTENOL SODIUM
     Dosage: 19.1 NG/KG/MIN CONTINUOUS; CONCENTRATION: 45,000 NG/ML; PUMP RATE: 79 ML/DAY; VIAL STRENGTH: 1.5 MG
     Route: 042
     Dates: start: 20080521
  2. ADCIRCA [Concomitant]
     Active Substance: TADALAFIL
  3. COUMADIN [Concomitant]
     Active Substance: WARFARIN SODIUM
  4. FLOLAN [Suspect]
     Active Substance: EPOPROSTENOL SODIUM
     Dosage: 18.7 NG/KG/MIN CONTINUOUSLY
     Dates: start: 20080520
  5. FLOLAN [Suspect]
     Active Substance: EPOPROSTENOL SODIUM
     Indication: PULMONARY ARTERIAL HYPERTENSION
     Dosage: 19.1 NG/KG/MIN CONTINUOUSLY
     Route: 042
     Dates: start: 20080520
  6. FLOLAN [Suspect]
     Active Substance: EPOPROSTENOL SODIUM
     Dosage: UNK
  7. FLOLAN [Suspect]
     Active Substance: EPOPROSTENOL SODIUM
     Dosage: 18.6 NG/KG/MIN CONTINUOUSLY

REACTIONS (7)
  - Complication associated with device [Unknown]
  - Haemoptysis [Unknown]
  - Hospitalisation [Unknown]
  - Lower respiratory tract infection fungal [Unknown]
  - Lung infection [Unknown]
  - Haematemesis [Unknown]
  - Sinusitis [Unknown]

NARRATIVE: CASE EVENT DATE: 20160117
